FAERS Safety Report 9803068 (Version 1)
Quarter: 2014Q1

REPORT INFORMATION
  Report Type: Spontaneous
  Country: US (occurrence: None)
  Receive Date: 20140102
  Receipt Date: 20140102
  Transmission Date: 20141002
  Serious: Yes (Other)
  Sender: FDA-Public Use
  Company Number: SYM-2013-14470

PATIENT
  Sex: Male

DRUGS (8)
  1. TETRABENZINE (TETRABENAZINE) (TETRABENAZINE) [Suspect]
     Indication: TIC
     Dosage: 12.5 MG, 2 IN 1 D
  2. HALOPERIDOL (HALOPERIDOL) (HALOPERIDOL) [Concomitant]
  3. PIMOZIDE (PIMOZIDE) (PIMOZIDE) [Concomitant]
  4. TRAZODONE (TRAZODONE) (TRAZODONE) [Concomitant]
  5. CLONIDINE (CLONIDINE) (CLONIDINE) [Concomitant]
  6. SERTRALINE (SERTRALINE) (SERTRALINE) [Concomitant]
  7. LEVODOPA (LEVODOPA) (LEVODOPA) [Concomitant]
  8. BACLOFEN (BACLOFEN) (BACLOFEN) [Concomitant]

REACTIONS (4)
  - Somnolence [None]
  - Parkinsonism [None]
  - Disturbance in attention [None]
  - Impulsive behaviour [None]
